FAERS Safety Report 4409577-3 (Version None)
Quarter: 2004Q3

REPORT INFORMATION
  Report Type: 
  Country: None (occurrence: None)
  Receive Date: 20040723
  Receipt Date: 20040706
  Transmission Date: 20050211
  Serious: Yes (Hospitalization)
  Sender: FDA-Public Use
  Company Number: 1628

PATIENT
  Age: 59 Year
  Sex: Female
  Weight: 51.2565 kg

DRUGS (12)
  1. AVINZA [Suspect]
     Indication: ARTHRALGIA
     Dosage: 360 MG QD PO
     Route: 048
     Dates: start: 20040102, end: 20040611
  2. AVINZA [Suspect]
     Indication: NECK PAIN
     Dosage: 360 MG QD PO
     Route: 048
     Dates: start: 20040102, end: 20040611
  3. CIMETIDINE [Concomitant]
  4. CITALOPRAM HYDROBROMIDE [Concomitant]
  5. CYCLOBENZAPRINE HCL [Concomitant]
  6. DIAZEPAM [Concomitant]
  7. HYDROCODONE/CETAMINOPHEN [Concomitant]
  8. IBUPROFEN [Concomitant]
  9. MODAFINIL [Concomitant]
  10. SENNA [Concomitant]
  11. SIMETHICONE [Concomitant]
  12. ZOLPIDEM TARTRATE [Concomitant]

REACTIONS (14)
  - ANOXIA [None]
  - BLOOD CREATININE INCREASED [None]
  - BLOOD UREA INCREASED [None]
  - CARDIO-RESPIRATORY ARREST [None]
  - CEREBRAL ISCHAEMIA [None]
  - CONFUSIONAL STATE [None]
  - CONVULSION [None]
  - DYSKINESIA [None]
  - LOSS OF CONSCIOUSNESS [None]
  - MEDICATION ERROR [None]
  - NAUSEA [None]
  - PAIN EXACERBATED [None]
  - VISION BLURRED [None]
  - VOMITING [None]
